FAERS Safety Report 25146478 (Version 1)
Quarter: 2025Q1

REPORT INFORMATION
  Report Type: Spontaneous
  Country: US (occurrence: None)
  Receive Date: 20250331
  Receipt Date: 20250331
  Transmission Date: 20250409
  Serious: Yes (Disabling, Other)
  Sender: FDA-CTU
  Company Number: None

PATIENT
  Age: 17 Year
  Sex: Female
  Weight: 59.4 kg

DRUGS (1)
  1. MINOCYCLINE [Suspect]
     Active Substance: MINOCYCLINE HYDROCHLORIDE
     Indication: Hidradenitis
     Dosage: FREQUENCY : TWICE A DAY;?
     Route: 048
     Dates: start: 20250326, end: 20250331

REACTIONS (5)
  - Dizziness [None]
  - Nausea [None]
  - Loss of personal independence in daily activities [None]
  - Walking aid user [None]
  - Therapy cessation [None]

NARRATIVE: CASE EVENT DATE: 20250331
